FAERS Safety Report 12585230 (Version 2)
Quarter: 2017Q2

REPORT INFORMATION
  Report Type: Spontaneous
  Country: AT (occurrence: AT)
  Receive Date: 20160723
  Receipt Date: 20170623
  Transmission Date: 20170830
  Serious: Yes (Hospitalization)
  Sender: FDA-Public Use
  Company Number: AT-009507513-1607AUT008193

PATIENT
  Age: 78 Year
  Sex: Female

DRUGS (18)
  1. MESTINON [Concomitant]
     Active Substance: PYRIDOSTIGMINE BROMIDE
     Indication: MYASTHENIA GRAVIS
     Dosage: 1 DF, UNKNOWN
     Route: 065
  2. DILATREND [Concomitant]
     Active Substance: CARVEDILOL
     Indication: CORONARY ARTERY DISEASE
     Dosage: 1/2-0-0
     Route: 048
  3. OLEOVIT [Concomitant]
     Indication: OPTIC NEURITIS
     Dosage: UNK
     Route: 047
     Dates: start: 201604
  4. SPIROBENE [Concomitant]
     Active Substance: SPIRONOLACTONE
     Indication: HYPERTENSION
     Dosage: 50 MG, UNKNOWN, 1 DOSAGE FORM
     Route: 048
  5. LENDORM [Concomitant]
     Active Substance: BROTIZOLAM
     Indication: PRODUCT USED FOR UNKNOWN INDICATION
     Dosage: 0.25 MG, UNKNOWN, 1/2 TAB
     Route: 048
  6. THROMBO ASS [Concomitant]
     Active Substance: ASPIRIN
     Indication: CEREBRAL INFARCTION
     Dosage: 100 MG, UNKNOWN, 1 DOSAGE FORM
     Route: 048
  7. PANTOLOC [Concomitant]
     Active Substance: PANTOPRAZOLE SODIUM
     Indication: PROPHYLAXIS AGAINST GASTROINTESTINAL ULCER
     Dosage: 40 MG, UNKNOWN, 1 DOSAGE FORM
     Route: 048
  8. TEBOFORTAN [Concomitant]
     Active Substance: GINKGO
     Indication: PERIPHERAL VENOUS DISEASE
     Dosage: 40 MG, UNKNOWN, 1 DOSAGE FORM
     Route: 048
  9. MAXI KALZ VIT D3 [Concomitant]
     Indication: OSTEOPOROSIS
     Dosage: 500MG/400LE
     Route: 065
  10. NOVALGIN (DIPYRONE) [Concomitant]
     Active Substance: DIPYRONE
     Indication: TUMOUR PAIN
     Dosage: 30 GTTS, UNKNOWN
     Route: 065
  11. KEYTRUDA [Suspect]
     Active Substance: PEMBROLIZUMAB
     Indication: NEUROENDOCRINE CARCINOMA OF THE SKIN
     Dosage: 50 MG, UNKNOWN, 2MG/KG
     Route: 042
     Dates: start: 20160330, end: 20160330
  12. DILATREND [Concomitant]
     Active Substance: CARVEDILOL
     Indication: HYPERTENSION
  13. URBASON [Concomitant]
     Active Substance: METHYLPREDNISOLONE
     Indication: PRODUCT USED FOR UNKNOWN INDICATION
     Dosage: 4 MG, UNKNOWN, 1 DOSAGE FORM
     Route: 048
  14. LESCOL [Concomitant]
     Active Substance: FLUVASTATIN SODIUM
     Indication: HYPERCHOLESTEROLAEMIA
     Dosage: 80 MG, UNKNOWN, 1 DOSAGE FORM
     Route: 048
  15. LASIX [Concomitant]
     Active Substance: FUROSEMIDE
     Indication: PRODUCT USED FOR UNKNOWN INDICATION
     Dosage: 30 MG, UNKNOWN, 1 DOSAGE FORM
     Route: 048
  16. SPIROBENE [Concomitant]
     Active Substance: SPIRONOLACTONE
     Indication: CORONARY ARTERY DISEASE
  17. CIPRALEX [Concomitant]
     Active Substance: ESCITALOPRAM OXALATE
     Indication: DEPRESSION
     Dosage: 10 MG, UNKNOWN, 1 DOSAGE FORM
     Route: 048
  18. DAFLON (DIOSMIN) [Concomitant]
     Active Substance: DIOSMIN
     Indication: PERIPHERAL VENOUS DISEASE
     Dosage: 500 MG, UNKNOWN, 1 DOSAGE FORM
     Route: 048

REACTIONS (8)
  - Dizziness [Not Recovered/Not Resolved]
  - Blood pressure abnormal [Not Recovered/Not Resolved]
  - Optic neuritis [Recovered/Resolved]
  - Nausea [Not Recovered/Not Resolved]
  - Vomiting [Not Recovered/Not Resolved]
  - Optic neuritis [Recovered/Resolved]
  - Rash [Not Recovered/Not Resolved]
  - Condition aggravated [Not Recovered/Not Resolved]

NARRATIVE: CASE EVENT DATE: 20160405
